FAERS Safety Report 17589046 (Version 11)
Quarter: 2021Q2

REPORT INFORMATION
  Report Type: Spontaneous
  Country: CA (occurrence: CA)
  Receive Date: 20200327
  Receipt Date: 20210520
  Transmission Date: 20210716
  Serious: Yes (Other)
  Sender: FDA-Public Use
  Company Number: CA-CELLTRION INC.-2020CA019029

PATIENT

DRUGS (15)
  1. ADVIL [Concomitant]
     Active Substance: IBUPROFEN
     Dosage: UNK, 1X/DAY
     Route: 065
  2. ACETAMINOPHEN. [Concomitant]
     Active Substance: ACETAMINOPHEN
     Indication: PREMEDICATION
     Dosage: 500 MG, UNK
     Dates: start: 20200128, end: 20200128
  3. ELTROXIN [Concomitant]
     Active Substance: LEVOTHYROXINE
     Dosage: 150 UG, 1X/DAY
     Route: 065
  4. INFLECTRA [Suspect]
     Active Substance: INFLIXIMAB-DYYB
     Dosage: 700 MG, THEN EVERY 8 WEEKS
     Route: 042
     Dates: start: 20210510
  5. TYLENOL EXTRA STRENGTH [Concomitant]
     Active Substance: ACETAMINOPHEN
     Dosage: 1000 MG, 1X/DAY
     Route: 065
  6. INFLECTRA [Suspect]
     Active Substance: INFLIXIMAB-DYYB
     Indication: COLITIS ULCERATIVE
     Dosage: 700 MG, THEN EVERY 8 WEEKS
     Route: 042
     Dates: start: 20200128
  7. INFLECTRA [Suspect]
     Active Substance: INFLIXIMAB-DYYB
     Dosage: 700 MG, THEN EVERY 8 WEEKS
     Route: 042
     Dates: start: 20201117
  8. INFLECTRA [Suspect]
     Active Substance: INFLIXIMAB-DYYB
     Dosage: 700 MG, THEN EVERY 8 WEEKS
     Route: 042
     Dates: start: 20210112
  9. INFLECTRA [Suspect]
     Active Substance: INFLIXIMAB-DYYB
     Dosage: 700 MG, THEN EVERY 8 WEEKS
     Route: 042
     Dates: start: 20200918
  10. PREVACID [Concomitant]
     Active Substance: LANSOPRAZOLE
     Dosage: 30 MG, 1X/DAY
     Route: 065
  11. TYLENOL EXTRA STRENGTH [Concomitant]
     Active Substance: ACETAMINOPHEN
     Dosage: UNK, 1X/DAY
     Route: 065
  12. INFLECTRA [Suspect]
     Active Substance: INFLIXIMAB-DYYB
     Dosage: 700 MG, THEN EVERY 8 WEEKS
     Route: 042
     Dates: start: 20200520
  13. INFLECTRA [Suspect]
     Active Substance: INFLIXIMAB-DYYB
     Dosage: 700 MG, THEN EVERY 8 WEEKS
     Route: 042
     Dates: start: 20200724
  14. INFLECTRA [Suspect]
     Active Substance: INFLIXIMAB-DYYB
     Dosage: 700 MG, THEN EVERY 8 WEEKS
     Route: 042
     Dates: start: 20200324
  15. INFLECTRA [Suspect]
     Active Substance: INFLIXIMAB-DYYB
     Dosage: 700 MG, THEN EVERY 8 WEEKS
     Route: 042
     Dates: start: 20210309

REACTIONS (11)
  - Flank pain [Unknown]
  - Off label use [Unknown]
  - Dizziness [Unknown]
  - Colitis ulcerative [Unknown]
  - Blood pressure increased [Unknown]
  - Therapeutic response shortened [Unknown]
  - Nausea [Not Recovered/Not Resolved]
  - Illness [Unknown]
  - Food allergy [Unknown]
  - Condition aggravated [Unknown]
  - Diarrhoea [Unknown]

NARRATIVE: CASE EVENT DATE: 20200128
